FAERS Safety Report 9340531 (Version 1)
Quarter: 2013Q2

REPORT INFORMATION
  Report Type: Spontaneous
  Country: FR (occurrence: FR)
  Receive Date: 20130610
  Receipt Date: 20130610
  Transmission Date: 20140414
  Serious: Yes (Other)
  Sender: FDA-Public Use
  Company Number: FR-TEVA-410880ISR

PATIENT
  Sex: Female

DRUGS (4)
  1. AIROMIR AUTOHALER 100 ?G/DOSE, SUSPENSION FOR INHALATION IN PRESSURIZE [Suspect]
     Indication: ASTHMA
     Dosage: 2 DOSAGE FORMS DAILY; 1 DF IN THE MORNING AND 1 DF IN THE EVENING SINCE 6 MONTHS
     Route: 055
     Dates: start: 2013
  2. QVAR 100 ?G/DOSE, SUSPENSION FOR INHALATION IN PRESSURIZED BOTTLE [Suspect]
     Indication: ASTHMA
     Dosage: 2 DOSAGE FORMS DAILY; 1 DF IN THE MORNING AND 1 DF IN THE EVENING SINCE A YEAR
     Route: 055
     Dates: start: 2012
  3. SINGULAIR [Concomitant]
     Indication: ASTHMA
     Dosage: 5 MILLIGRAM DAILY; IN THE EVENING
  4. ZOLOFT 50 MG CAPSULE [Concomitant]
     Indication: ANXIETY
     Dosage: 50 MILLIGRAM DAILY;

REACTIONS (1)
  - Growth retardation [Not Recovered/Not Resolved]
